FAERS Safety Report 8560187-6 (Version None)
Quarter: 2012Q2

REPORT INFORMATION
  Report Type: 
  Country: None (occurrence: None)
  Receive Date: 20120418
  Receipt Date: 20081031
  Transmission Date: 20120825
  Serious: Yes (Other)
  Sender: FDA-Public Use
  Company Number: PHEH2008US09894

PATIENT
  Sex: Female

DRUGS (3)
  1. ESTRADERM [Suspect]
     Dates: start: 19920101
  2. PROVERA [Suspect]
     Dates: start: 19920101, end: 19930101
  3. PREMARIN [Suspect]
     Dates: start: 19920101, end: 19930101

REACTIONS (1)
  - BREAST CANCER [None]
